FAERS Safety Report 6294696-X (Version None)
Quarter: 2009Q3

REPORT INFORMATION
  Report Type: 
  Country: None (occurrence: None)
  Receive Date: 20090803
  Receipt Date: 20090721
  Transmission Date: 20100115
  Serious: Yes (Hospitalization)
  Sender: FDA-Public Use
  Company Number: A0799771A

PATIENT
  Age: 65 Year
  Sex: Male

DRUGS (1)
  1. AVANDARYL [Suspect]
     Dosage: 4MG PER DAY
     Route: 065
     Dates: start: 20070210, end: 20070507

REACTIONS (4)
  - ATRIAL FIBRILLATION [None]
  - MACULAR OEDEMA [None]
  - MYOCARDIAL INFARCTION [None]
  - TRANSIENT ISCHAEMIC ATTACK [None]
